FAERS Safety Report 5771764-X (Version None)
Quarter: 2008Q2

REPORT INFORMATION
  Report Type: 
  Country: None (occurrence: None)
  Receive Date: 20080613
  Receipt Date: 20080605
  Transmission Date: 20081010
  Serious: Yes (Death, Hospitalization)
  Sender: FDA-Public Use
  Company Number: US-ROCHE-568580

PATIENT
  Sex: Female
  Weight: 63.5 kg

DRUGS (7)
  1. BUMEX [Suspect]
     Indication: DRUG USE FOR UNKNOWN INDICATION
     Route: 048
  2. ATACAND [Concomitant]
     Route: 048
  3. LIPITOR [Concomitant]
     Route: 048
  4. TOPROL-XL [Concomitant]
     Route: 048
  5. POTASSIUM CHLORIDE [Concomitant]
     Route: 048
  6. ACIPHEX [Concomitant]
     Route: 048
  7. INSULIN [Concomitant]

REACTIONS (3)
  - CHEST PAIN [None]
  - CYSTITIS [None]
  - MYOCARDIAL INFARCTION [None]
